FAERS Safety Report 20100520 (Version 1)
Quarter: 2021Q4

REPORT INFORMATION
  Report Type: Spontaneous
  Country: US (occurrence: None)
  Receive Date: 20211123
  Receipt Date: 20211123
  Transmission Date: 20220303
  Serious: Yes (Hospitalization, Other)
  Sender: FDA-Public Use
  Company Number: US-MLMSERVICE-20211104-3207377-1

PATIENT
  Age: 65 Year
  Sex: Male

DRUGS (1)
  1. LISINOPRIL [Suspect]
     Active Substance: LISINOPRIL
     Indication: Hypertension
     Dosage: INCREASING DOSE
     Route: 065

REACTIONS (2)
  - Fibrillary glomerulonephritis [Unknown]
  - Acute kidney injury [Unknown]
